FAERS Safety Report 8617243-3 (Version None)
Quarter: 2012Q3

REPORT INFORMATION
  Report Type: 
  Country: None (occurrence: None)
  Receive Date: 20120823
  Receipt Date: 20120810
  Transmission Date: 20120928
  Serious: No
  Sender: FDA-Public Use
  Company Number: US-ASTRAZENECA-2012SE56629

PATIENT
  Age: 72 Year
  Sex: Female
  Weight: 99.8 kg

DRUGS (11)
  1. BLOOD PRESSURE MEDICATION [Concomitant]
  2. SPIRIVA [Concomitant]
     Dosage: QAM
  3. PROAIR HFA [Concomitant]
  4. IPRATROPIUM BROMIDE [Concomitant]
  5. SINGULAIR [Concomitant]
  6. SYMBICORT [Suspect]
     Indication: ASTHMA
     Dosage: 160/4.5MCG, TWO PUFFS IN MORNING AND TWO PUFFS IN EVENING
     Route: 055
     Dates: start: 20120101
  7. COUMADIN [Concomitant]
     Indication: ATRIAL FIBRILLATION
  8. VITAMIN TAB [Concomitant]
  9. SYMBICORT [Suspect]
     Indication: EMPHYSEMA
     Dosage: 160/4.5MCG, TWO PUFFS IN MORNING AND TWO PUFFS IN EVENING
     Route: 055
     Dates: start: 20120101
  10. HERBS [Concomitant]
  11. ALBUTEROL [Concomitant]

REACTIONS (3)
  - CIRCUMSTANCE OR INFORMATION CAPABLE OF LEADING TO MEDICATION ERROR [None]
  - DYSPNOEA [None]
  - OFF LABEL USE [None]
